FAERS Safety Report 16588471 (Version 1)
Quarter: 2019Q3

REPORT INFORMATION
  Report Type: Spontaneous
  Country: DE (occurrence: DE)
  Receive Date: 20190718
  Receipt Date: 20190718
  Transmission Date: 20191004
  Serious: Yes (Life-Threatening, Hospitalization)
  Sender: FDA-Public Use
  Company Number: DE-ACCORD-138946

PATIENT
  Age: 69 Year
  Sex: Male
  Weight: 80 kg

DRUGS (5)
  1. FOLSAN [Concomitant]
     Active Substance: FOLIC ACID
     Dosage: 0.4 MG, 1-0-0,  TABLET
     Route: 048
  2. MILGAMMA [Concomitant]
     Dosage: 1-0-1, CAPSULES
     Route: 048
  3. PANTOPRAZOLE [Concomitant]
     Active Substance: PANTOPRAZOLE
     Dosage: 40 MG, 1-0-0,  TABLET
     Route: 048
  4. SPIRONOLACTONE. [Suspect]
     Active Substance: SPIRONOLACTONE
     Indication: PRODUCT USED FOR UNKNOWN INDICATION
     Dosage: 50 MG, 2-1-0, TABLET
     Route: 048
  5. TORASEMIDE [Concomitant]
     Active Substance: TORSEMIDE
     Dosage: 25 MG, 1-0-0,
     Route: 048

REACTIONS (3)
  - General physical health deterioration [Unknown]
  - Haematemesis [Unknown]
  - Jaundice [Unknown]
